FAERS Safety Report 7045516-7 (Version None)
Quarter: 2010Q4

REPORT INFORMATION
  Report Type: 
  Country: None (occurrence: None)
  Receive Date: 20101014
  Receipt Date: 20101008
  Transmission Date: 20110411
  Serious: Yes (Hospitalization)
  Sender: FDA-Public Use
  Company Number: FR-ROCHE-715752

PATIENT
  Sex: Female
  Weight: 70 kg

DRUGS (14)
  1. ROACTEMRA [Suspect]
     Indication: RHEUMATOID ARTHRITIS
     Dosage: FREQUENCY: CYCLE
     Route: 042
     Dates: start: 20090901
  2. ROACTEMRA [Suspect]
     Dosage: CYCLE, FORM : INFUSION
     Route: 042
     Dates: start: 20100415, end: 20100616
  3. PREDNISONE [Concomitant]
     Indication: RHEUMATOID ARTHRITIS
     Route: 048
     Dates: start: 20031201
  4. POTASSIUM CHLORURE [Concomitant]
     Indication: RHEUMATOID ARTHRITIS
     Route: 048
     Dates: start: 20031201
  5. PARACETAMOL [Concomitant]
     Indication: RHEUMATOID ARTHRITIS
     Dosage: DAILY
     Dates: start: 20090105, end: 20100701
  6. KETOPROFEN [Concomitant]
     Indication: RHEUMATOID ARTHRITIS
     Dosage: LOCAL APPLICATION
     Dates: start: 20070320
  7. CALCIUM CARBONATE [Concomitant]
     Indication: RHEUMATOID ARTHRITIS
     Route: 048
     Dates: start: 20040505
  8. CHOLECALCIFEROL [Concomitant]
     Indication: RHEUMATOID ARTHRITIS
     Route: 048
     Dates: start: 20040505
  9. ALENDRONIC ACID [Concomitant]
     Route: 048
     Dates: start: 20040505
  10. LEFLUNOMIDE [Concomitant]
     Route: 048
     Dates: start: 20080630, end: 20100701
  11. ESOMEPRAZOLE [Concomitant]
     Indication: RHEUMATOID ARTHRITIS
     Route: 048
     Dates: start: 20100701, end: 20100706
  12. LEVOTHYROXINE [Concomitant]
     Indication: HYPOTHYROIDISM
     Route: 048
  13. MORPHINE SULFATE [Concomitant]
     Indication: RHEUMATOID ARTHRITIS
     Route: 048
     Dates: start: 20100601, end: 20100701
  14. VASTAREL [Concomitant]
     Route: 048
     Dates: end: 20100101

REACTIONS (2)
  - ASCITES [None]
  - PNEUMOPERITONEUM [None]
